FAERS Safety Report 21074818 (Version 3)
Quarter: 2023Q1

REPORT INFORMATION
  Report Type: Spontaneous
  Country: US (occurrence: US)
  Receive Date: 20220713
  Receipt Date: 20230118
  Transmission Date: 20230417
  Serious: Yes (Other)
  Sender: FDA-Public Use
  Company Number: US-VIIV HEALTHCARE LIMITED-US2022AMR103019

PATIENT
  Age: 28 Year
  Sex: Male

DRUGS (9)
  1. RILPIVIRINE [Suspect]
     Active Substance: RILPIVIRINE
     Indication: Product used for unknown indication
     Dosage: UNK ,UNK, Z: Q2M 600MG/900 MG, EVERY 8 WEEKS, 3 ML SUSPENSION
     Route: 030
     Dates: start: 202201, end: 202207
  2. CABOTEGRAVIR [Suspect]
     Active Substance: CABOTEGRAVIR
     Indication: Product used for unknown indication
     Dosage: UNK ,UNK, Z: Q2M 600MG/900 MG, EVERY 8 WEEKS, 3 ML SUSPENSION
     Route: 030
     Dates: start: 202201, end: 202207
  3. ALBUTEROL SULFATE [Concomitant]
     Active Substance: ALBUTEROL SULFATE
     Indication: Product used for unknown indication
     Dosage: 1 PUFF(S)108 (90 BASE) MCG/ACT AEROSOL SOLUTION,EVERY  4 HRS
     Route: 055
  4. GUAIFENESIN [Concomitant]
     Active Substance: GUAIFENESIN
     Indication: Product used for unknown indication
     Dosage: 1 DF, 400 MG, AS NEEDED
     Route: 048
  5. PREDNISONE [Concomitant]
     Active Substance: PREDNISONE
     Indication: Product used for unknown indication
     Dosage: 1 DF, QD, 20 MG
     Route: 048
  6. DOXYCYCLINE [Concomitant]
     Active Substance: DOXYCYCLINE
     Indication: Product used for unknown indication
     Dosage: 1 DF, BID, 100 MG
     Route: 048
  7. MECLIZINE HYDROCHLORIDE [Concomitant]
     Active Substance: MECLIZINE HYDROCHLORIDE
     Indication: Product used for unknown indication
     Dosage: UNK, 25 MG, MAY  TAKE 1OR 2 TABLETS  AS NEEDED
     Route: 048
  8. BIKTARVY [Concomitant]
     Active Substance: BICTEGRAVIR SODIUM\EMTRICITABINE\TENOFOVIR ALAFENAMIDE FUMARATE
     Indication: Product used for unknown indication
     Dosage: UNK
  9. BIKTARVY [Concomitant]
     Active Substance: BICTEGRAVIR SODIUM\EMTRICITABINE\TENOFOVIR ALAFENAMIDE FUMARATE
     Dosage: UNK
     Dates: start: 202208

REACTIONS (16)
  - Neuropathy peripheral [Unknown]
  - Axonal neuropathy [Unknown]
  - Throat tightness [Recovered/Resolved]
  - Back pain [Recovered/Resolved]
  - Erythema [Recovered/Resolved]
  - Flushing [Recovered/Resolved]
  - Dizziness [Recovering/Resolving]
  - Arthralgia [Unknown]
  - Myalgia [Not Recovered/Not Resolved]
  - Pain [Unknown]
  - Dyspnoea [Recovered/Resolved]
  - Fatigue [Unknown]
  - Breath sounds abnormal [Recovered/Resolved]
  - Drug intolerance [Unknown]
  - Exposure via skin contact [Unknown]
  - Device use error [Unknown]

NARRATIVE: CASE EVENT DATE: 20220101
